FAERS Safety Report 24213318 (Version 2)
Quarter: 2024Q3

REPORT INFORMATION
  Report Type: Spontaneous
  Country: US (occurrence: US)
  Receive Date: 20240815
  Receipt Date: 20240916
  Transmission Date: 20241016
  Serious: No
  Sender: PFIZER
  Company Number: US-PFIZER INC-202400230925

PATIENT
  Age: 12 Year
  Sex: Male

DRUGS (1)
  1. GENOTROPIN [Suspect]
     Active Substance: SOMATROPIN
     Dosage: 1.4 MG, DAILY

REACTIONS (1)
  - Device breakage [Unknown]
